FAERS Safety Report 7388337 (Version 15)
Quarter: 2014Q1

REPORT INFORMATION
  Report Type: Spontaneous
  Country: US (occurrence: US)
  Receive Date: 20100514
  Receipt Date: 20140115
  Transmission Date: 20141002
  Serious: Yes (Other)
  Sender: FDA-Public Use
  Company Number: PHEH2010US03423

PATIENT
  Sex: Female

DRUGS (18)
  1. AREDIA [Suspect]
     Route: 042
  2. ZOMETA [Suspect]
     Indication: BREAST CANCER METASTATIC
     Route: 042
  3. AVASTIN [Concomitant]
  4. AMBIEN [Concomitant]
     Indication: SLEEP DISORDER
  5. ATIVAN [Concomitant]
  6. DEXAMETHASONE [Concomitant]
  7. HEPARIN SODIUM [Concomitant]
  8. ONDANSETRON [Concomitant]
  9. SENNA [Concomitant]
  10. NEULASTA [Concomitant]
  11. RADIATION [Concomitant]
  12. FEMARA [Concomitant]
  13. GEMCITABINE [Concomitant]
  14. FLUOROURACIL [Concomitant]
  15. LEUCOVORIN [Concomitant]
  16. HERCEPTIN [Concomitant]
  17. VINORELBINE [Concomitant]
  18. PACLITAXEL [Concomitant]

REACTIONS (69)
  - Skin haemorrhage [Unknown]
  - Lymphoedema [Unknown]
  - Splenomegaly [Unknown]
  - Breast cancer stage IV [Unknown]
  - Metastases to central nervous system [Unknown]
  - Metastases to bone [Unknown]
  - Metastases to chest wall [Unknown]
  - Soft tissue inflammation [Unknown]
  - Metastases to spine [Unknown]
  - Metastases to pelvis [Unknown]
  - Pleural effusion [Unknown]
  - Pulmonary mass [Unknown]
  - Pneumonia [Unknown]
  - Fall [Unknown]
  - Pineal gland cyst [Unknown]
  - Osteonecrosis of jaw [Unknown]
  - Injury [Unknown]
  - Disability [Unknown]
  - Pain [Unknown]
  - Anxiety [Unknown]
  - Anhedonia [Unknown]
  - Anaemia [Unknown]
  - Gamma-glutamyltransferase increased [Unknown]
  - Aspartate aminotransferase increased [Unknown]
  - Blood alkaline phosphatase increased [Unknown]
  - Depression [Unknown]
  - Skin disorder [Unknown]
  - Bone lesion [Unknown]
  - Oedema peripheral [Unknown]
  - Fatigue [Unknown]
  - Skin mass [Unknown]
  - Obesity [Unknown]
  - Dizziness [Unknown]
  - Metastases to skin [Unknown]
  - Dyspnoea exertional [Unknown]
  - Deafness unilateral [Unknown]
  - Dental caries [Unknown]
  - Ocular cancer metastatic [Unknown]
  - Memory impairment [Unknown]
  - Confusional state [Unknown]
  - Oral disorder [Unknown]
  - Radiation oesophagitis [Unknown]
  - Chest wall necrosis [Unknown]
  - Visual acuity reduced [Unknown]
  - Cellulitis [Unknown]
  - Osteoporosis [Unknown]
  - Lethargy [Unknown]
  - Muscular weakness [Unknown]
  - Alopecia [Unknown]
  - Eyelid ptosis [Unknown]
  - Dysphonia [Unknown]
  - Osteolysis [Unknown]
  - Nausea [Unknown]
  - Vomiting [Unknown]
  - Abscess jaw [Unknown]
  - Exposed bone in jaw [Unknown]
  - Trismus [Unknown]
  - Infection [Unknown]
  - Fistula [Unknown]
  - Skin ulcer [Unknown]
  - Cardiomegaly [Unknown]
  - Erythema [Unknown]
  - Bone swelling [Unknown]
  - Salivary gland enlargement [Unknown]
  - Spinal osteoarthritis [Unknown]
  - Intervertebral disc space narrowing [Unknown]
  - Red blood cell schistocytes present [Unknown]
  - Poikilocytosis [Unknown]
  - Osteosclerosis [Unknown]
